FAERS Safety Report 10079564 (Version 2)
Quarter: 2015Q1

REPORT INFORMATION
  Report Type: Spontaneous
  Country: US (occurrence: US)
  Receive Date: 20140415
  Receipt Date: 20150127
  Transmission Date: 20150720
  Serious: Yes (Other)
  Sender: FDA-Public Use
  Company Number: US-BAYER-2014-054894

PATIENT
  Age: 36 Year
  Sex: Female

DRUGS (8)
  1. OCELLA [Suspect]
     Active Substance: DROSPIRENONE\ETHINYL ESTRADIOL
  2. YASMIN [Suspect]
     Active Substance: DROSPIRENONE\ETHINYL ESTRADIOL
  3. YAZ [Suspect]
     Active Substance: DROSPIRENONE\ETHINYL ESTRADIOL
  4. CODEINE [Concomitant]
     Active Substance: CODEINE
  5. MAXAIR [Concomitant]
     Active Substance: PIRBUTEROL ACETATE
  6. BENADRYL [Concomitant]
     Active Substance: DIPHENHYDRAMINE HYDROCHLORIDE
  7. VANCERIL [Concomitant]
     Active Substance: BECLOMETHASONE DIPROPIONATE
  8. PROVENTIL [Concomitant]
     Active Substance: ALBUTEROL

REACTIONS (7)
  - Deep vein thrombosis [None]
  - Cerebrovascular accident [None]
  - Pulmonary embolism [None]
  - Thrombosis [None]
  - Pain [None]
  - Injury [None]
  - Emotional distress [None]

NARRATIVE: CASE EVENT DATE: 199809
